FAERS Safety Report 17665243 (Version 1)
Quarter: 2020Q2

REPORT INFORMATION
  Report Type: Spontaneous
  Country: IT (occurrence: IT)
  Receive Date: 20200414
  Receipt Date: 20200414
  Transmission Date: 20200713
  Serious: Yes (Death, Life-Threatening, Hospitalization)
  Sender: FDA-Public Use
  Company Number: IT-CELLTRION-2020-IT-000074

PATIENT
  Age: 39 Year
  Sex: Female

DRUGS (3)
  1. PALIPERIDONE. [Suspect]
     Active Substance: PALIPERIDONE
     Indication: BIPOLAR DISORDER
     Dosage: 100MG EVERY 4 WEEKS DEPOT INJECTION
     Route: 030
  2. CLONAZEPAM. [Concomitant]
     Active Substance: CLONAZEPAM
     Dosage: 1 MG THREE TIMES DAILY
  3. LAMOTRIGINE (NON-SPECIFIC) [Suspect]
     Active Substance: LAMOTRIGINE
     Indication: BIPOLAR DISORDER
     Dosage: 25MG TWICE A DAY
     Route: 048

REACTIONS (2)
  - Inappropriate antidiuretic hormone secretion [Fatal]
  - Hyponatraemia [Not Recovered/Not Resolved]
